FAERS Safety Report 9152976 (Version 1)
Quarter: 2013Q1

REPORT INFORMATION
  Report Type: Spontaneous
  Country: US (occurrence: US)
  Receive Date: 20130213
  Receipt Date: 20130213
  Transmission Date: 20140127
  Serious: Yes (Death)
  Sender: FDA-Public Use
  Company Number: US-RB-017774-09

PATIENT
  Age: 69 None
  Sex: Female
  Weight: 63 kg

DRUGS (8)
  1. SUBOXONE [Suspect]
     Indication: DRUG DEPENDENCE
     Route: 060
     Dates: start: 20090609, end: 20090622
  2. SUBOXONE [Suspect]
     Route: 060
     Dates: start: 20090623
  3. TRIAMTERENE [Concomitant]
     Indication: BLOOD PRESSURE INCREASED
     Dosage: UNKNOWN DOSING INFORMATION.
     Route: 065
     Dates: start: 2005
  4. CLONIDINE [Concomitant]
     Indication: BLOOD PRESSURE INCREASED
     Dosage: UNKNOWN DOSING INFORMATION.
     Route: 065
     Dates: start: 2005
  5. LISINOPRIL [Concomitant]
     Indication: BLOOD PRESSURE INCREASED
     Dosage: UNKNOWN DOSING INFORMATION.
     Route: 065
     Dates: start: 2005
  6. ATENOLOL [Concomitant]
     Indication: BLOOD PRESSURE INCREASED
     Dosage: UNKNOWN DOSING INFORMATION.
     Route: 065
     Dates: start: 2005
  7. NITROGLYCERIN [Concomitant]
     Indication: ANGINA PECTORIS
     Dosage: UNKNOWN DOSING INFORMATION.
     Route: 065
     Dates: start: 2005
  8. PROMETHAZINE [Concomitant]
     Indication: PRODUCT USED FOR UNKNOWN INDICATION
     Dosage: UNKNOWN DOSING INFORMATION.
     Route: 065
     Dates: start: 2005

REACTIONS (6)
  - Hyperhidrosis [Recovered/Resolved]
  - Local swelling [Recovered/Resolved]
  - Joint swelling [Recovered/Resolved]
  - Headache [Recovered/Resolved]
  - Joint injury [Recovered/Resolved]
  - Death [Fatal]
